FAERS Safety Report 19465390 (Version 1)
Quarter: 2021Q2

REPORT INFORMATION
  Report Type: Spontaneous
  Country: NL (occurrence: NL)
  Receive Date: 20210624
  Receipt Date: 20210624
  Transmission Date: 20210717
  Serious: Yes (Life-Threatening)
  Sender: FDA-Public Use
  Company Number: NVSC2021NL141777

PATIENT
  Age: 26 Year
  Sex: Female
  Weight: 75 kg

DRUGS (1)
  1. CETIRIZINE [Suspect]
     Active Substance: CETIRIZINE HYDROCHLORIDE
     Indication: PRODUCT USED FOR UNKNOWN INDICATION
     Dosage: TABLET, 10 MG (MILLIGRAM)
     Route: 065
     Dates: start: 20210604

REACTIONS (5)
  - Cough [Recovering/Resolving]
  - Pruritus [Recovering/Resolving]
  - Anaphylactic shock [Recovering/Resolving]
  - Erythema [Recovering/Resolving]
  - Hypotension [Recovering/Resolving]

NARRATIVE: CASE EVENT DATE: 20210604
